FAERS Safety Report 10193884 (Version 1)
Quarter: 2014Q2

REPORT INFORMATION
  Report Type: Spontaneous
  Country: US (occurrence: US)
  Receive Date: 20140524
  Receipt Date: 20140524
  Transmission Date: 20141212
  Serious: No
  Sender: FDA-Public Use
  Company Number: US-SANOFI-AVENTIS-2013SA049794

PATIENT
  Age: 51 Year
  Sex: Female

DRUGS (1)
  1. LANTUS [Suspect]
     Indication: DIABETES MELLITUS
     Dosage: DOSE:25 UNIT(S)
     Route: 065
     Dates: start: 2013

REACTIONS (4)
  - Hyperhidrosis [Unknown]
  - Asthenia [Unknown]
  - Fatigue [Unknown]
  - Hypoaesthesia [Unknown]
